FAERS Safety Report 24943747 (Version 1)
Quarter: 2025Q1

REPORT INFORMATION
  Report Type: Spontaneous
  Country: PL (occurrence: PL)
  Receive Date: 20250207
  Receipt Date: 20250207
  Transmission Date: 20250409
  Serious: Yes (Disabling, Other)
  Sender: GILEAD
  Company Number: PL-GILEAD-2025-0702726

PATIENT
  Age: 57 Year
  Sex: Female

DRUGS (1)
  1. TRODELVY [Suspect]
     Active Substance: SACITUZUMAB GOVITECAN-HZIY
     Indication: Hormone receptor positive HER2 negative breast cancer
     Route: 065
     Dates: start: 20240419, end: 20241126

REACTIONS (1)
  - Disease progression [Unknown]
